FAERS Safety Report 23927794 (Version 1)
Quarter: 2024Q2

REPORT INFORMATION
  Report Type: Spontaneous
  Country: US (occurrence: US)
  Receive Date: 20240531
  Receipt Date: 20240531
  Transmission Date: 20240715
  Serious: No
  Sender: FDA-Public Use
  Company Number: US-009507513-2405USA001452

PATIENT
  Age: 66 Year
  Sex: Male

DRUGS (8)
  1. TEMODAR [Suspect]
     Active Substance: TEMOZOLOMIDE
     Indication: Chordoma
     Dosage: UNK
     Route: 048
     Dates: start: 2002
  2. TEMODAR [Suspect]
     Active Substance: TEMOZOLOMIDE
     Indication: Neoplasm recurrence
  3. OCTREOTIDE [Concomitant]
     Active Substance: OCTREOTIDE\OCTREOTIDE ACETATE
     Indication: Chordoma
     Dosage: UNK
     Dates: start: 2002
  4. OCTREOTIDE [Concomitant]
     Active Substance: OCTREOTIDE\OCTREOTIDE ACETATE
     Indication: Neoplasm recurrence
  5. PACLITAXEL [Concomitant]
     Active Substance: PACLITAXEL
     Indication: Chordoma
     Dosage: UNK
     Dates: start: 2002
  6. PACLITAXEL [Concomitant]
     Active Substance: PACLITAXEL
     Indication: Neoplasm recurrence
  7. CISPLATIN\ETOPOSIDE [Concomitant]
     Active Substance: CISPLATIN\ETOPOSIDE
     Indication: Chordoma
     Dosage: UNK
     Dates: start: 2002
  8. CISPLATIN\ETOPOSIDE [Concomitant]
     Active Substance: CISPLATIN\ETOPOSIDE
     Indication: Neoplasm recurrence

REACTIONS (1)
  - Product use in unapproved indication [Unknown]

NARRATIVE: CASE EVENT DATE: 20020101
